FAERS Safety Report 14141148 (Version 1)
Quarter: 2017Q4

REPORT INFORMATION
  Report Type: Spontaneous
  Country: US (occurrence: US)
  Receive Date: 20171030
  Receipt Date: 20171030
  Transmission Date: 20180321
  Serious: Yes (Hospitalization, Other)
  Sender: FDA-Public Use
  Company Number: US-PFIZER INC-2017464725

PATIENT
  Age: 62 Year
  Sex: Male
  Weight: 212 kg

DRUGS (2)
  1. INLYTA [Suspect]
     Active Substance: AXITINIB
     Indication: METASTATIC RENAL CELL CARCINOMA
     Dosage: 3 MG (1MG, 3 TABLETS), 2X/DAY
     Dates: start: 2016, end: 20171010
  2. NYSTATIN. [Concomitant]
     Active Substance: NYSTATIN
     Dosage: UNK

REACTIONS (5)
  - Renal failure [Unknown]
  - Skin fissures [Unknown]
  - Rash [Unknown]
  - Blood glucose decreased [Unknown]
  - Obstruction gastric [Unknown]
